FAERS Safety Report 6998507-6 (Version None)
Quarter: 2010Q3

REPORT INFORMATION
  Report Type: 
  Country: None (occurrence: None)
  Receive Date: 20100920
  Receipt Date: 20080305
  Transmission Date: 20110219
  Serious: Yes (Other)
  Sender: FDA-Public Use
  Company Number: US-ASTRAZENECA-2008UW00668

PATIENT
  Age: 44 Year
  Sex: Male
  Weight: 61.2 kg

DRUGS (8)
  1. SEROQUEL [Suspect]
     Indication: BIPOLAR DISORDER
     Route: 048
     Dates: start: 19990101, end: 20070301
  2. SEROQUEL [Suspect]
     Indication: DEPRESSION
     Route: 048
     Dates: start: 19990101, end: 20070301
  3. SEROQUEL [Suspect]
     Route: 048
     Dates: start: 20040120
  4. SEROQUEL [Suspect]
     Route: 048
     Dates: start: 20040120
  5. CLOZARIL [Concomitant]
     Dates: start: 20000801
  6. HALDOL [Concomitant]
     Dates: start: 20040201
  7. THORAZINE [Concomitant]
  8. RISPERIDONE [Concomitant]
     Dates: end: 20040120

REACTIONS (4)
  - DIABETES MELLITUS [None]
  - HYPERGLYCAEMIA [None]
  - JOINT DISLOCATION [None]
  - TYPE 2 DIABETES MELLITUS [None]
